FAERS Safety Report 4482077-0 (Version None)
Quarter: 2004Q3

REPORT INFORMATION
  Report Type: 
  Country: None (occurrence: None)
  Receive Date: 20040921
  Receipt Date: 20030826
  Transmission Date: 20050211
  Serious: Yes (Other)
  Sender: FDA-Public Use
  Company Number: 163-20785-03070098(1)

PATIENT
  Age: 85 Year
  Sex: Male

DRUGS (1)
  1. THALOMID [Suspect]
     Indication: MULTIPLE MYELOMA
     Dosage: 100 MG, DAILY, ORAL
     Route: 048
     Dates: start: 20030601, end: 20031001

REACTIONS (8)
  - BLOOD BLISTER [None]
  - DIPLOPIA [None]
  - FATIGUE [None]
  - FREQUENT BOWEL MOVEMENTS [None]
  - HOARSENESS [None]
  - RASH GENERALISED [None]
  - SOMNOLENCE [None]
  - STARING [None]
